FAERS Safety Report 5025474-7 (Version None)
Quarter: 2006Q2

REPORT INFORMATION
  Report Type: 
  Country: None (occurrence: None)
  Receive Date: 20060608
  Receipt Date: 20060526
  Transmission Date: 20061013
  Serious: Yes (Hospitalization, Other)
  Sender: FDA-Public Use
  Company Number: 2006S1000044

PATIENT
  Age: 63 Year
  Sex: Female
  Weight: 46.2 kg

DRUGS (17)
  1. CUBICIN [Suspect]
     Indication: BACTERAEMIA
     Dosage: 280 MG; IV
     Route: 042
     Dates: start: 20050101
  2. VANCOMYCIN [Concomitant]
  3. GENTAMICIN [Concomitant]
  4. DARBEPOETIN ALFA [Concomitant]
  5. ACETYLSALICYLIC ACID SRT [Concomitant]
  6. NEPHROCAPS [Concomitant]
  7. RENAGEL [Concomitant]
  8. PANTOPRAZOLE [Concomitant]
  9. CEFTRIAXONE [Concomitant]
  10. HEPARIN [Concomitant]
  11. CIPROFLOXACIN HCL [Concomitant]
  12. ACETAMINOPHEN [Concomitant]
  13. LOVASTATIN [Concomitant]
  14. ACTIVASE [Concomitant]
  15. DESMOPRESSIN [Concomitant]
  16. AMPHOJEL [Concomitant]
  17. CITALOPRAM [Concomitant]

REACTIONS (11)
  - ACTIVATED PARTIAL THROMBOPLASTIN TIME PROLONGED [None]
  - BLOOD CULTURE POSITIVE [None]
  - CATHETER RELATED COMPLICATION [None]
  - CATHETER SITE HAEMORRHAGE [None]
  - CENTRAL LINE INFECTION [None]
  - EOSINOPHILIA [None]
  - HAEMATOMA [None]
  - KLEBSIELLA INFECTION [None]
  - PANCYTOPENIA [None]
  - PROTHROMBIN TIME PROLONGED [None]
  - PSEUDOMONAS INFECTION [None]
